FAERS Safety Report 15842338 (Version 1)
Quarter: 2019Q1

REPORT INFORMATION
  Report Type: Spontaneous
  Country: US (occurrence: US)
  Receive Date: 20190117
  Receipt Date: 20190117
  Transmission Date: 20190417
  Serious: No
  Sender: FDA-Public Use
  Company Number: None

PATIENT
  Age: 47 Year
  Sex: Female

DRUGS (1)
  1. AJOVY [Suspect]
     Active Substance: FREMANEZUMAB-VFRM
     Indication: MIGRAINE
     Dosage: ?          OTHER FREQUENCY:QUARTERLY;?
     Route: 058
     Dates: start: 20181001

REACTIONS (3)
  - Fatigue [None]
  - Oropharyngeal pain [None]
  - Somnolence [None]

NARRATIVE: CASE EVENT DATE: 20181001
